FAERS Safety Report 7989267-0 (Version None)
Quarter: 2011Q4

REPORT INFORMATION
  Report Type: 
  Country: None (occurrence: None)
  Receive Date: 20111007
  Receipt Date: 20110826
  Transmission Date: 20120403
  Serious: No
  Sender: FDA-Public Use
  Company Number: 2011HGS-002522

PATIENT
  Age: 55 Year
  Sex: Female
  Weight: 80.7403 kg

DRUGS (10)
  1. BENLYSTA [Suspect]
     Indication: SYSTEMIC LUPUS ERYTHEMATOSUS
     Dosage: 1 IN 14 D, INTRAVENOUS DRIP
     Route: 042
     Dates: start: 20110705, end: 20110705
  2. PRILOSEC (OMEPRAZOLE) (OMEPRAZOLE) [Concomitant]
  3. FLEXERIL (CYCLOBENZAPRINE HYDROCHLORIDE)(CYCLOBENZAPRINE HYDROCHLORIDE [Concomitant]
  4. ZYRTEC [Concomitant]
  5. PREDNISONE [Concomitant]
  6. ULTRAM (TRAMADOL HYDROCHLORIDE)(TRAMADOL HYDROCHLORIDE) [Concomitant]
  7. TYLENOL (PARACETAMOL)(PARACETAMOL) [Concomitant]
  8. XANAX [Concomitant]
  9. INDERAL [Concomitant]
  10. MAXZIDE (DYAZIDE) (HYDROCHLOROTHIAZIDE, TRIAMTERENE) [Concomitant]

REACTIONS (2)
  - URINARY TRACT INFECTION [None]
  - INSOMNIA [None]
